FAERS Safety Report 5868418-8 (Version None)
Quarter: 2008Q3

REPORT INFORMATION
  Report Type: 
  Country: None (occurrence: None)
  Receive Date: 20080828
  Receipt Date: 20080818
  Transmission Date: 20090109
  Serious: Yes (Other)
  Sender: FDA-Public Use
  Company Number: MC200800385

PATIENT
  Age: 80 Year
  Sex: Female

DRUGS (1)
  1. ANGIOMAX [Suspect]
     Indication: ANTICOAGULANT THERAPY

REACTIONS (4)
  - CARDIAC TAMPONADE [None]
  - CORONARY ARTERY PERFORATION [None]
  - EXTRAVASATION [None]
  - PERICARDIAL EFFUSION [None]
